FAERS Safety Report 9149260 (Version 6)
Quarter: 2013Q2

REPORT INFORMATION
  Report Type: Spontaneous
  Country: NL (occurrence: None)
  Receive Date: 20130130
  Receipt Date: 20130621
  Transmission Date: 20140414
  Serious: Yes (Hospitalization)
  Sender: FDA-Public Use
  Company Number: ACO_33838_2013

PATIENT
  Age: 51 Year
  Sex: Male

DRUGS (7)
  1. FAMPRIDINE [Suspect]
     Indication: MULTIPLE SCLEROSIS
     Dosage: UNK UNK, BID, ORAL?01/02/2013  TO  ONGING
     Route: 048
     Dates: start: 20130102
  2. LYRICA (PREGABALIN) [Concomitant]
  3. LISINOPRIL (LISINOPRIL) [Concomitant]
  4. LOSARTAN (LOSARTAN POTASSIUM) [Concomitant]
  5. CARBAMAZEPINE (CARBAMAZEPINE) CHEWABLE TABLET [Concomitant]
  6. PARACETAMOL (PARACETAMOL) [Concomitant]
  7. CARBAMAZEPINE (CARBAMAZEPINE) [Concomitant]

REACTIONS (6)
  - Trigeminal neuralgia [None]
  - Condition aggravated [None]
  - Paraparesis [None]
  - Somnolence [None]
  - Hyponatraemia [None]
  - White matter lesion [None]
